FAERS Safety Report 13610529 (Version 9)
Quarter: 2018Q4

REPORT INFORMATION
  Report Type: Spontaneous
  Country: US (occurrence: US)
  Receive Date: 20170605
  Receipt Date: 20181005
  Transmission Date: 20190204
  Serious: Yes (Congenital Anomaly, Other)
  Sender: FDA-Public Use
  Company Number: PHEH2017US016653

PATIENT
  Sex: Female

DRUGS (2)
  1. ZOFRAN [Suspect]
     Active Substance: ONDANSETRON HYDROCHLORIDE
     Indication: FOETAL EXPOSURE DURING PREGNANCY
     Route: 064
  2. ZOFRAN [Suspect]
     Active Substance: ONDANSETRON HYDROCHLORIDE
     Indication: FOETAL EXPOSURE DURING PREGNANCY
     Dosage: MOTHER^S DOSE: 8 MG, Q6H
     Route: 064

REACTIONS (16)
  - Abdominal pain [Unknown]
  - Dysphagia [Unknown]
  - Gastrooesophageal reflux disease [Recovered/Resolved]
  - Constipation [Unknown]
  - Bronchitis [Unknown]
  - Epistaxis [Unknown]
  - Pneumothorax [Unknown]
  - Developmental delay [Unknown]
  - Injury [Unknown]
  - Cough [Unknown]
  - Arterial disorder [Unknown]
  - Oesophageal stenosis [Unknown]
  - Aortic disorder [Unknown]
  - Foetal exposure during pregnancy [Unknown]
  - Acute sinusitis [Unknown]
  - Musculoskeletal pain [Unknown]
